FAERS Safety Report 11835289 (Version 4)
Quarter: 2016Q1

REPORT INFORMATION
  Report Type: Spontaneous
  Country: JP (occurrence: JP)
  Receive Date: 20151215
  Receipt Date: 20160201
  Transmission Date: 20160525
  Serious: Yes (Other)
  Sender: FDA-Public Use
  Company Number: JP-ROCHE-1676709

PATIENT
  Age: 25 Year
  Sex: Female
  Weight: 41 kg

DRUGS (7)
  1. KENACORT [Concomitant]
     Active Substance: TRIAMCINOLONE
     Dosage: IN LEFT EYE
     Route: 065
     Dates: start: 20150309
  2. LUCENTIS [Suspect]
     Active Substance: RANIBIZUMAB
     Route: 050
     Dates: start: 20150309
  3. LUCENTIS [Suspect]
     Active Substance: RANIBIZUMAB
     Indication: DIABETIC RETINAL OEDEMA
     Route: 050
     Dates: start: 20140808
  4. LUCENTIS [Suspect]
     Active Substance: RANIBIZUMAB
     Route: 050
     Dates: start: 20141225
  5. AVASTIN [Suspect]
     Active Substance: BEVACIZUMAB
     Indication: DIABETIC RETINAL OEDEMA
     Route: 050
     Dates: start: 20140328
  6. EYLEA [Concomitant]
     Active Substance: AFLIBERCEPT
     Dosage: IN LEFT EYE
     Route: 065
     Dates: start: 20150410
  7. LUCENTIS [Suspect]
     Active Substance: RANIBIZUMAB
     Route: 050
     Dates: start: 20141031

REACTIONS (4)
  - Retinal vascular occlusion [Unknown]
  - Retinal detachment [Recovered/Resolved]
  - Cystoid macular oedema [Recovered/Resolved]
  - Retinal exudates [Recovering/Resolving]

NARRATIVE: CASE EVENT DATE: 20140818
